FAERS Safety Report 5925502-8 (Version None)
Quarter: 2008Q4

REPORT INFORMATION
  Report Type: 
  Country: None (occurrence: None)
  Receive Date: 20081021
  Receipt Date: 20081014
  Transmission Date: 20090506
  Serious: Yes (Other)
  Sender: FDA-Public Use
  Company Number: PHHY2008RU24892

PATIENT
  Age: 36 Year
  Sex: Male

DRUGS (1)
  1. EXJADE [Suspect]
     Indication: HAEMOCHROMATOSIS
     Dosage: UNK
     Route: 065
     Dates: start: 20080916, end: 20081011

REACTIONS (4)
  - APATHY [None]
  - EYE IRRITATION [None]
  - EYE PAIN [None]
  - PYREXIA [None]
